FAERS Safety Report 8677574 (Version 5)
Quarter: 2013Q4

REPORT INFORMATION
  Report Type: Spontaneous
  Country: US (occurrence: US)
  Receive Date: 20120406
  Receipt Date: 20131226
  Transmission Date: 20140711
  Serious: Yes (Other)
  Sender: FDA-Public Use
  Company Number: PHHY2010US68320

PATIENT
  Age: 52 Year
  Sex: Female
  Weight: 78 kg

DRUGS (7)
  1. TASIGNA (AMN107) CAPSULE [Suspect]
     Indication: CHRONIC MYELOID LEUKAEMIA
     Dosage: 300 MG, BID
     Route: 048
     Dates: start: 20090907
  2. SIMVASTATIN (SIMVASTATIN) [Concomitant]
     Dosage: UNK
     Dates: start: 201009, end: 201010
  3. PROTONIX (PANTOPRAZOLE SODIUM SESQUIHYDRATE) [Concomitant]
  4. ASA (ACETYLSALICYLIC ACID) [Concomitant]
     Dosage: 81 MG, UNK
  5. METOPROLOL (METOPROLOL) [Concomitant]
  6. VITAMIN D (ERGOCALCIFEROL) [Concomitant]
  7. FISH OIL (FISH OIL) [Concomitant]

REACTIONS (9)
  - Coronary artery occlusion [Unknown]
  - Atrioventricular block [Unknown]
  - Chest pain [Recovering/Resolving]
  - Electrocardiogram Q wave abnormal [Unknown]
  - Headache [Recovering/Resolving]
  - Nausea [Recovering/Resolving]
  - Dyspepsia [Recovering/Resolving]
  - Pain [Recovering/Resolving]
  - Dyspepsia [None]
